FAERS Safety Report 17527081 (Version 1)
Quarter: 2020Q1

REPORT INFORMATION
  Report Type: Spontaneous
  Country: US (occurrence: US)
  Receive Date: 20200310
  Receipt Date: 20200310
  Transmission Date: 20200409
  Serious: Yes (Other)
  Sender: FDA-Public Use
  Company Number: US-AMGEN-USASP2020036686

PATIENT
  Age: 60 Year
  Sex: Male

DRUGS (4)
  1. DARBEPOETIN ALFA [Suspect]
     Active Substance: DARBEPOETIN ALFA
     Indication: MYELODYSPLASTIC SYNDROME
     Dosage: UNK UNK, QMO
     Route: 065
  2. EPOGEN [Suspect]
     Active Substance: ERYTHROPOIETIN
     Indication: MYELODYSPLASTIC SYNDROME
     Dosage: UNK
     Route: 065
  3. DARBEPOETIN ALFA [Suspect]
     Active Substance: DARBEPOETIN ALFA
     Indication: REFRACTORY ANAEMIA WITH RINGED SIDEROBLASTS
     Dosage: UNK
     Route: 065
     Dates: start: 2004
  4. EPOGEN [Suspect]
     Active Substance: ERYTHROPOIETIN
     Indication: REFRACTORY ANAEMIA WITH RINGED SIDEROBLASTS
     Dosage: 40000 UNIT, QWK
     Route: 065
     Dates: start: 200309, end: 2004

REACTIONS (5)
  - Off label use [Unknown]
  - Acute coronary syndrome [Unknown]
  - Drug ineffective for unapproved indication [Unknown]
  - Myocardial infarction [Unknown]
  - Anaemia macrocytic [Unknown]
